FAERS Safety Report 5361579-9 (Version None)
Quarter: 2007Q2

REPORT INFORMATION
  Report Type: 
  Country: None (occurrence: None)
  Receive Date: 20070619
  Receipt Date: 20070611
  Transmission Date: 20071010
  Serious: Yes (Death)
  Sender: FDA-Public Use
  Company Number: PHBS2007JP08584

PATIENT

DRUGS (1)
  1. SANDIMMUNE [Suspect]
     Indication: APLASTIC ANAEMIA
     Route: 048

REACTIONS (2)
  - APLASTIC ANAEMIA [None]
  - BILE DUCT CANCER [None]
